FAERS Safety Report 4566008-0 (Version None)
Quarter: 2005Q1

REPORT INFORMATION
  Report Type: 
  Country: None (occurrence: None)
  Receive Date: 20050128
  Receipt Date: 20050118
  Transmission Date: 20050727
  Serious: Yes (Hospitalization)
  Sender: FDA-Public Use
  Company Number: GXKR2005ES00470

PATIENT
  Age: 74 Year
  Sex: Male

DRUGS (4)
  1. ENALAPRIL MALEATE [Suspect]
     Indication: HYPERTENSION
  2. LORMETAZEPAM     (LORMETAZEPAM) [Concomitant]
  3. AMLODIPINE [Concomitant]
  4. ACENOCOUMAROL    (ACENOCOUMAROL) [Concomitant]

REACTIONS (3)
  - BLOOD CORTISOL DECREASED [None]
  - BLOOD THYROID STIMULATING HORMONE DECREASED [None]
  - INAPPROPRIATE ANTIDIURETIC HORMONE SECRETION [None]
